FAERS Safety Report 4694077-6 (Version None)
Quarter: 2005Q2

REPORT INFORMATION
  Report Type: 
  Country: None (occurrence: None)
  Receive Date: 20050616
  Receipt Date: 20050607
  Transmission Date: 20051028
  Serious: Yes (Other)
  Sender: FDA-Public Use
  Company Number: 2005075495

PATIENT
  Sex: Male

DRUGS (1)
  1. LIPITOR [Suspect]
     Indication: ILL-DEFINED DISORDER
     Dosage: (10 MG), ORAL
     Route: 048

REACTIONS (3)
  - DYSPNOEA [None]
  - FATIGUE [None]
  - PLEURAL EFFUSION [None]
